FAERS Safety Report 4667540-1 (Version None)
Quarter: 2005Q2

REPORT INFORMATION
  Report Type: 
  Country: None (occurrence: None)
  Receive Date: 20050520
  Receipt Date: 20050516
  Transmission Date: 20051028
  Serious: Yes (Hospitalization)
  Sender: FDA-Public Use
  Company Number: US-JNJFOC-20050504429

PATIENT
  Age: 52 Year
  Sex: Female

DRUGS (3)
  1. PROPULSID [Suspect]
     Indication: DRUG USE FOR UNKNOWN INDICATION
     Route: 049
  2. HYZAAR [Suspect]
     Route: 049
  3. HYZAAR [Suspect]
     Indication: HYPERTENSION
     Route: 049

REACTIONS (2)
  - BLOOD POTASSIUM DECREASED [None]
  - SYNCOPE [None]
